FAERS Safety Report 7970285-3 (Version None)
Quarter: 2011Q4

REPORT INFORMATION
  Report Type: 
  Country: None (occurrence: None)
  Receive Date: 20111122
  Receipt Date: 20110906
  Transmission Date: 20120403
  Serious: No
  Sender: FDA-Public Use
  Company Number: PHEH2011US02178

PATIENT
  Age: 56 Year
  Sex: Female

DRUGS (2)
  1. ANTICHOLINERGIC AGENTS (NO INGREDIENTS/SUBSTANCES) [Concomitant]
  2. GILENYA [Suspect]
     Indication: MULTIPLE SCLEROSIS
     Dosage: 0.5 MG, QD, ORAL
     Route: 048
     Dates: start: 20110606

REACTIONS (3)
  - EYE INFECTION [None]
  - DRY EYE [None]
  - DYSPNOEA [None]
